FAERS Safety Report 7490819-5 (Version None)
Quarter: 2011Q2

REPORT INFORMATION
  Report Type: 
  Country: None (occurrence: None)
  Receive Date: 20110519
  Receipt Date: 20110505
  Transmission Date: 20111010
  Serious: Yes (Other)
  Sender: FDA-Public Use
  Company Number: DE-JNJFOC-20110503387

PATIENT
  Age: 42 Year
  Sex: Male

DRUGS (9)
  1. REMICADE [Suspect]
     Indication: PYODERMA GANGRENOSUM
     Route: 042
     Dates: start: 20110505
  2. REMICADE [Suspect]
     Dosage: 5 MG/KG
     Route: 042
     Dates: start: 20110325
  3. REMICADE [Suspect]
     Route: 042
     Dates: start: 20100801, end: 20101101
  4. REMICADE [Suspect]
     Route: 042
     Dates: start: 20100801, end: 20101101
  5. REMICADE [Suspect]
     Indication: COLITIS ULCERATIVE
     Route: 042
     Dates: start: 20110301
  6. REMICADE [Suspect]
     Route: 042
     Dates: start: 20110301
  7. REMICADE [Suspect]
     Dosage: 5 MG/KG
     Route: 042
     Dates: start: 20110325
  8. REMICADE [Suspect]
     Route: 042
     Dates: start: 20110505
  9. PREDNISOLONE [Concomitant]

REACTIONS (8)
  - GENERAL PHYSICAL HEALTH DETERIORATION [None]
  - INFUSION RELATED REACTION [None]
  - HEADACHE [None]
  - ERYTHEMA [None]
  - RASH [None]
  - DYSPNOEA [None]
  - CARDIOVASCULAR DISORDER [None]
  - HYPOTENSION [None]
